FAERS Safety Report 7844197-X (Version None)
Quarter: 2011Q4

REPORT INFORMATION
  Report Type: 
  Country: None (occurrence: None)
  Receive Date: 20111025
  Receipt Date: 20111011
  Transmission Date: 20120403
  Serious: Yes (Hospitalization)
  Sender: FDA-Public Use
  Company Number: US-ELI_LILLY_AND_COMPANY-US201105002628

PATIENT
  Sex: Male

DRUGS (11)
  1. AVODART [Concomitant]
  2. NADOLOL [Concomitant]
  3. IPRATROPIUM BROMIDE [Concomitant]
  4. FORTEO [Suspect]
     Dosage: 20 UG, QD
  5. SIMVASTATIN [Concomitant]
  6. FORTEO [Suspect]
     Indication: OSTEOPOROSIS
     Dosage: 20 UG, QD
     Dates: start: 20110505
  7. CARBAMAZEPINE [Concomitant]
  8. TAMSULOSIN HCL [Concomitant]
  9. FORTEO [Suspect]
     Dosage: 20 UG, QD
     Route: 065
  10. OXYBUTYNIN [Concomitant]
  11. ASPIRIN [Concomitant]

REACTIONS (3)
  - CHOLECYSTITIS [None]
  - DIZZINESS [None]
  - INJECTION SITE HAEMATOMA [None]
